FAERS Safety Report 7295659-8 (Version None)
Quarter: 2011Q1

REPORT INFORMATION
  Report Type: 
  Country: None (occurrence: None)
  Receive Date: 20110216
  Receipt Date: 20101214
  Transmission Date: 20110831
  Serious: No
  Sender: FDA-Public Use
  Company Number: US-ABBOTT-10P-163-0691310-00

PATIENT
  Sex: Female
  Weight: 63.56 kg

DRUGS (2)
  1. SIMCOR [Suspect]
     Indication: PRODUCT USED FOR UNKNOWN INDICATION
     Dosage: 1000/40MG AT BEDTIME
     Dates: start: 20101201
  2. UNKNOWN MEDICATION [Concomitant]
     Indication: DIABETES MELLITUS
     Route: 048

REACTIONS (4)
  - PRURITUS [None]
  - FOOD CRAVING [None]
  - ERYTHEMA [None]
  - NAUSEA [None]
